FAERS Safety Report 25868935 (Version 1)
Quarter: 2025Q4

REPORT INFORMATION
  Report Type: Report from Study
  Country: US (occurrence: US)
  Receive Date: 20251001
  Receipt Date: 20251001
  Transmission Date: 20260118
  Serious: Yes (Other)
  Sender: ROCHE
  Company Number: US-ROCHE-10000398197

PATIENT
  Age: 78 Year
  Sex: Male

DRUGS (4)
  1. VENCLEXTA [Suspect]
     Active Substance: VENETOCLAX
     Indication: Chronic lymphocytic leukaemia
     Dosage: DAILY DOSE: 400 MG 20MG X 7 DAYS, 50MG X 7 DAYS, 100MG?X 7 DAYS, 200MG X 7 DAYS.
     Route: 048
     Dates: start: 20250623
  2. VENCLEXTA [Suspect]
     Active Substance: VENETOCLAX
     Dosage: DAILY DOSE: 400 MG 20MG X 7 DAYS, 50MG X 7 DAYS, 100MG?X 7 DAYS, 200MG X 7 DAYS.
     Route: 048
     Dates: start: 2025
  3. GAZYVA [Suspect]
     Active Substance: OBINUTUZUMAB
     Indication: Product used for unknown indication
     Route: 065
  4. SODIUM CHLORIDE [Suspect]
     Active Substance: SODIUM CHLORIDE
     Indication: Product used for unknown indication
     Route: 065

REACTIONS (7)
  - Ascites [Unknown]
  - Asthenia [Unknown]
  - Abdominal distension [Unknown]
  - Decreased appetite [Unknown]
  - Oedema peripheral [Unknown]
  - Hepatic fibrosis [Unknown]
  - Fatigue [Unknown]

NARRATIVE: CASE EVENT DATE: 20250101
